FAERS Safety Report 23273144 (Version 1)
Quarter: 2023Q4

REPORT INFORMATION
  Report Type: Report from Study
  Country: US (occurrence: US)
  Receive Date: 20231207
  Receipt Date: 20231207
  Transmission Date: 20240110
  Serious: Yes (Hospitalization, Other)
  Sender: FDA-Public Use
  Company Number: US-AMYLYX PHARMACEUTICALS, INC-AMX-000760

PATIENT
  Age: 61 Year
  Sex: Male

DRUGS (3)
  1. RELYVRIO [Suspect]
     Active Substance: SODIUM PHENYLBUTYRATE\TAURURSODIOL
     Indication: Amyotrophic lateral sclerosis
     Dosage: 1 PACKET DAILY FOR THE FIRST 3 WEEKS
     Route: 048
     Dates: start: 20221114
  2. EDARAVONE [Concomitant]
     Active Substance: EDARAVONE
     Indication: Product used for unknown indication
     Dosage: UNK
  3. RILUZOLE [Concomitant]
     Active Substance: RILUZOLE
     Indication: Product used for unknown indication
     Dosage: UNK

REACTIONS (2)
  - Pneumonia [Recovered/Resolved]
  - Breath odour [Unknown]

NARRATIVE: CASE EVENT DATE: 20220101
